FAERS Safety Report 9242009 (Version 3)
Quarter: 2013Q3

REPORT INFORMATION
  Report Type: Spontaneous
  Country: US (occurrence: US)
  Receive Date: 20130419
  Receipt Date: 20130830
  Transmission Date: 20140515
  Serious: Yes (Hospitalization)
  Sender: FDA-Public Use
  Company Number: US-ELI_LILLY_AND_COMPANY-US201304003136

PATIENT
  Age: 54 Year
  Sex: Male

DRUGS (10)
  1. STRATTERA [Suspect]
     Indication: ATTENTION DEFICIT/HYPERACTIVITY DISORDER
     Dosage: 60 MG, EACH MORNING
     Route: 065
     Dates: start: 2010
  2. STRATTERA [Suspect]
     Dosage: 40 MG, OTHER: AT NOON
     Route: 065
     Dates: start: 2010
  3. STRATTERA [Suspect]
     Dosage: 60 MG, BID
     Route: 065
  4. EFFEXOR [Concomitant]
     Dosage: 150 MG, UNKNOWN
     Route: 065
  5. FINASTERIDE [Concomitant]
     Dosage: .5 MG, UNKNOWN
     Route: 065
  6. VASICARE [Concomitant]
     Indication: BLADDER DISORDER
     Dosage: 5 MG, UNKNOWN
     Route: 065
  7. PRAVASTATIN [Concomitant]
     Dosage: 40 MG, UNKNOWN
     Route: 065
  8. FAMOTIDINE [Concomitant]
     Dosage: 20 MG, UNKNOWN
     Route: 065
  9. SYNTHROID [Concomitant]
     Route: 065
  10. ADDERALL [Concomitant]
     Dosage: UNK, UNKNOWN
     Route: 065

REACTIONS (6)
  - Suicide attempt [Recovered/Resolved]
  - Suicidal ideation [Recovered/Resolved]
  - Somnolence [Recovered/Resolved]
  - Abnormal behaviour [Unknown]
  - Drug withdrawal syndrome [Unknown]
  - Prescribed overdose [Unknown]
